FAERS Safety Report 7094133-1 (Version None)
Quarter: 2010Q4

REPORT INFORMATION
  Report Type: 
  Country: None (occurrence: None)
  Receive Date: 20101110
  Receipt Date: 20101104
  Transmission Date: 20110411
  Serious: Yes (Other)
  Sender: FDA-Public Use
  Company Number: SE-BRISTOL-MYERS SQUIBB COMPANY-15369069

PATIENT
  Age: 20 Year
  Sex: Male

DRUGS (5)
  1. ORENCIA [Suspect]
     Indication: JUVENILE ARTHRITIS
     Route: 042
     Dates: start: 20090916
  2. METHOTREXATE [Concomitant]
  3. CORTISONE [Concomitant]
  4. PREDNISOLONE [Concomitant]
     Dosage: PREDNISOLONE 5MG TABLET
  5. PRONAXEN [Concomitant]
     Dosage: 1DF=500M

REACTIONS (1)
  - OPTIC NEURITIS [None]
